FAERS Safety Report 9260544 (Version 1)
Quarter: 2013Q1

REPORT INFORMATION
  Report Type: Spontaneous
  Country: US (occurrence: None)
  Receive Date: 20121212
  Receipt Date: 20121212
  Transmission Date: 20140127
  Serious: No
  Sender: FDA-Public Use
  Company Number: 1210USA001085

PATIENT
  Age: 58 Year
  Sex: Male

DRUGS (3)
  1. RIBAVIRIN (RIBAVIRIN) CAPSULE [Suspect]
     Indication: HEPATITIS C
     Dates: start: 20120405
  2. VICTRELIS (BOCEPREVIR) CAPSULE [Suspect]
     Indication: HEPATITIS C
     Dates: start: 20120503
  3. PEGASYS (PEGINTERFERON ALFA2-A) [Suspect]
     Indication: HEPATITIS C
     Dates: start: 20120405

REACTIONS (3)
  - Dysgeusia [None]
  - Alopecia [None]
  - Anaemia [None]
